FAERS Safety Report 16357786 (Version 1)
Quarter: 2019Q2

REPORT INFORMATION
  Report Type: Report from Study
  Country: None (occurrence: US)
  Receive Date: 20190527
  Receipt Date: 20190527
  Transmission Date: 20190711
  Serious: Yes (Other)
  Sender: FDA-Public Use
  Company Number: US-ABBVIE-18K-163-2545552-00

PATIENT
  Age: 75 Year
  Sex: Female

DRUGS (1)
  1. HUMIRA [Suspect]
     Active Substance: ADALIMUMAB
     Indication: RHEUMATOID ARTHRITIS
     Dosage: CITRATE FREE (CF)
     Route: 058

REACTIONS (13)
  - Sensitivity to weather change [Unknown]
  - Osteoarthritis [Unknown]
  - Arthralgia [Unknown]
  - Abdominal discomfort [Recovering/Resolving]
  - Back pain [Unknown]
  - Diarrhoea [Recovering/Resolving]
  - Localised infection [Unknown]
  - Hyperkeratosis [Unknown]
  - Pain in extremity [Recovering/Resolving]
  - Dysstasia [Recovering/Resolving]
  - Nausea [Recovering/Resolving]
  - Back pain [Recovering/Resolving]
  - Peripheral swelling [Recovering/Resolving]

NARRATIVE: CASE EVENT DATE: 20181030
